FAERS Safety Report 10577280 (Version 5)
Quarter: 2015Q4

REPORT INFORMATION
  Report Type: Spontaneous
  Country: US (occurrence: US)
  Receive Date: 20141111
  Receipt Date: 20151222
  Transmission Date: 20160304
  Serious: Yes (Hospitalization)
  Sender: FDA-Public Use
  Company Number: US-PFIZER INC-2014308405

PATIENT
  Age: 78 Year
  Sex: Male

DRUGS (26)
  1. ATORVASTATIN [Concomitant]
     Active Substance: ATORVASTATIN
     Dosage: 40 MG, UNK
     Dates: start: 2006
  2. CYTOXAN [Concomitant]
     Active Substance: CYCLOPHOSPHAMIDE
     Dosage: UNK
  3. GLEEVEC [Concomitant]
     Active Substance: IMATINIB MESYLATE
     Dosage: UNK (DOSE LESS THAN AND EQUAL TO 500 MG/DAY)
  4. METHOTREXATE [Concomitant]
     Active Substance: METHOTREXATE
     Dosage: UNK (DOSE GREATER THAN 25 MG/WEEK)
  5. VESANOID [Concomitant]
     Active Substance: TRETINOIN
     Dosage: UNK
  6. CEENU [Concomitant]
     Active Substance: LOMUSTINE
     Dosage: UNK
  7. THALOMID [Concomitant]
     Active Substance: THALIDOMIDE
     Dosage: UNK
  8. LYSODREN [Concomitant]
     Active Substance: MITOTANE
     Dosage: UNK
  9. TEMODAR [Concomitant]
     Active Substance: TEMOZOLOMIDE
     Dosage: UNK
  10. ATRA [Concomitant]
     Active Substance: TRETINOIN
     Dosage: UNK
  11. ASPIRIN. [Concomitant]
     Active Substance: ASPIRIN
     Dosage: 75 MG, UNK
     Dates: start: 2011
  12. XELODA [Concomitant]
     Active Substance: CAPECITABINE
     Dosage: UNK
  13. VEPESID [Concomitant]
     Active Substance: ETOPOSIDE
     Dosage: UNK
  14. MATULANE [Concomitant]
     Active Substance: PROCARBAZINE HYDROCHLORIDE
     Dosage: UNK
  15. BISACODYL. [Concomitant]
     Active Substance: BISACODYL
     Dosage: UNK
     Dates: start: 2006
  16. METOPROLOL TARTRATE. [Concomitant]
     Active Substance: METOPROLOL TARTRATE
     Dosage: 25 MG, UNK
     Dates: start: 2006
  17. ISOSORBIDE MONONITRATE. [Concomitant]
     Active Substance: ISOSORBIDE MONONITRATE
     Dosage: 60 MG, UNK
     Dates: start: 2006
  18. LISINOPRIL. [Concomitant]
     Active Substance: LISINOPRIL
     Dosage: 10 MG, 2X/DAY
     Dates: start: 2006
  19. MYLERAN [Concomitant]
     Active Substance: BUSULFAN
     Dosage: UNK
  20. HYDREA [Concomitant]
     Active Substance: HYDROXYUREA
     Dosage: UNK (DOSE LESS THAN AND EQUAL TO 1500 MG/DAY)
  21. PURINETHOL [Concomitant]
     Active Substance: MERCAPTOPURINE
     Dosage: UNK
  22. BENEFIX [Suspect]
     Active Substance: COAGULATION FACTOR IX RECOMBINANT HUMAN\ISOPROPYL ALCOHOL
     Indication: FACTOR IX DEFICIENCY
     Dosage: 2000 IU, (THREE TIMES IN A WEEK/THREE TIMES PER WEEK)
     Route: 042
     Dates: start: 201107
  23. AMLODIPINE [Concomitant]
     Active Substance: AMLODIPINE BESYLATE
     Dosage: 7.5 MG, UNK
     Dates: start: 2006
  24. LEUKERAN [Concomitant]
     Active Substance: CHLORAMBUCIL
     Dosage: UNK
  25. TARCEVA [Concomitant]
     Active Substance: ERLOTINIB HYDROCHLORIDE
     Dosage: UNK
  26. ALKERAN [Concomitant]
     Active Substance: MELPHALAN
     Dosage: UNK

REACTIONS (1)
  - Arthralgia [Recovered/Resolved]
